FAERS Safety Report 16821924 (Version 1)
Quarter: 2019Q3

REPORT INFORMATION
  Report Type: Spontaneous
  Country: FR (occurrence: FR)
  Receive Date: 20190918
  Receipt Date: 20190918
  Transmission Date: 20191005
  Serious: Yes (Hospitalization)
  Sender: FDA-Public Use
  Company Number: FR-PFIZER INC-2019398427

PATIENT
  Age: 14 Year
  Sex: Male
  Weight: 94 kg

DRUGS (9)
  1. DIAZEPAM. [Suspect]
     Active Substance: DIAZEPAM
     Dosage: 480 MG, SINGLE
     Route: 048
     Dates: start: 20190210, end: 20190210
  2. DICLOFENAC [Suspect]
     Active Substance: DICLOFENAC
     Dosage: 5000 MG, SINGLE
     Route: 048
     Dates: start: 20190210, end: 20190210
  3. IBUPROFEN. [Suspect]
     Active Substance: IBUPROFEN
     Dosage: 4400 MG, SINGLE
     Route: 048
     Dates: start: 20190210, end: 20190210
  4. CIALIS [Suspect]
     Active Substance: TADALAFIL
     Dosage: 40 MG, SINGLE
     Route: 048
     Dates: start: 20190210, end: 20190210
  5. ESCITALOPRAM [Suspect]
     Active Substance: ESCITALOPRAM OXALATE
     Dosage: 820 MG, SINGLE
     Route: 048
     Dates: start: 20190210, end: 20190210
  6. DIANE (CYPROTERONE ACETATE\ETHINYL ESTRADIOL) [Suspect]
     Active Substance: CYPROTERONE ACETATE\ETHINYL ESTRADIOL
     Dosage: 21 DF, SINGLE
     Route: 048
     Dates: start: 20190210, end: 20190210
  7. PARACETAMOL [Suspect]
     Active Substance: ACETAMINOPHEN
     Dosage: 2 G, SINGLE
     Route: 048
     Dates: start: 20190210, end: 20190210
  8. COLCHICINE. [Suspect]
     Active Substance: COLCHICINE
     Dosage: 6 MG, SINGLE
     Route: 048
     Dates: start: 20190210, end: 20190210
  9. DONORMYL [DOXYLAMINE SUCCINATE] [Suspect]
     Active Substance: DOXYLAMINE SUCCINATE
     Dosage: 300 MG, SINGLE
     Route: 048
     Dates: start: 20190210, end: 20190210

REACTIONS (4)
  - Malaise [Recovered/Resolved]
  - Hypotension [Recovered/Resolved]
  - Diarrhoea [Recovered/Resolved]
  - Intentional overdose [Unknown]

NARRATIVE: CASE EVENT DATE: 20190210
